FAERS Safety Report 8004683-9 (Version None)
Quarter: 2011Q4

REPORT INFORMATION
  Report Type: 
  Country: None (occurrence: None)
  Receive Date: 20111223
  Receipt Date: 20111213
  Transmission Date: 20120403
  Serious: Yes (Hospitalization, Other)
  Sender: FDA-Public Use
  Company Number: IL-RANBAXY-2011RR-51191

PATIENT
  Age: 54 Year
  Sex: Female

DRUGS (1)
  1. ETODOLAC [Suspect]
     Indication: BACK PAIN
     Dosage: 800 MG/DAY
     Route: 065

REACTIONS (1)
  - COLITIS MICROSCOPIC [None]
